FAERS Safety Report 9641246 (Version 1)
Quarter: 2013Q4

REPORT INFORMATION
  Report Type: Spontaneous
  Country: US (occurrence: None)
  Receive Date: 20131022
  Receipt Date: 20131022
  Transmission Date: 20140711
  Serious: No
  Sender: FDA-Public Use
  Company Number: None

PATIENT
  Age: 81 None
  Sex: Male
  Weight: 71.8 kg

DRUGS (1)
  1. SULFAMETHOXAZOLE/TRIMETHOPRIM [Suspect]
     Indication: BRONCHITIS
     Route: 048
     Dates: start: 20130818, end: 20130820

REACTIONS (5)
  - Oropharyngeal pain [None]
  - Rash [None]
  - Drug hypersensitivity [None]
  - Renal impairment [None]
  - Stomatitis [None]
